FAERS Safety Report 21140855 (Version 1)
Quarter: 2022Q3

REPORT INFORMATION
  Report Type: Other
  Country: US (occurrence: US)
  Receive Date: 20220728
  Receipt Date: 20220728
  Transmission Date: 20221027
  Serious: Yes (Hospitalization, Other)
  Sender: FDA-Public Use
  Company Number: US-HLS-202201112

PATIENT
  Age: 40 Year
  Sex: Male

DRUGS (1)
  1. CLOZAPINE [Suspect]
     Active Substance: CLOZAPINE
     Indication: Schizoaffective disorder bipolar type
     Dosage: ON DAY 12, CLOZAPINE TITRATION WAS?RESTARTED - CLOZAPINE WAS GRADUALLY RETITRATED TO 225 MG DAILY AT
     Route: 065

REACTIONS (21)
  - Treatment noncompliance [Unknown]
  - Agitation [Unknown]
  - Anxiety [Unknown]
  - Catatonia [Unknown]
  - Cholinergic rebound syndrome [Unknown]
  - Treatment noncompliance [Unknown]
  - Confusional state [Unknown]
  - COVID-19 [Unknown]
  - Delirium [Recovered/Resolved]
  - Hyperhidrosis [Unknown]
  - Schizophrenia [Unknown]
  - Disorientation [Unknown]
  - Vomiting [Unknown]
  - Extrapyramidal disorder [Unknown]
  - Grandiosity [Unknown]
  - Nausea [Unknown]
  - Poor quality sleep [Unknown]
  - Restlessness [Unknown]
  - Suicidal ideation [Unknown]
  - Tachycardia [Unknown]
  - Tremor [Unknown]
